FAERS Safety Report 8374534-1 (Version None)
Quarter: 2012Q2

REPORT INFORMATION
  Report Type: 
  Country: None (occurrence: None)
  Receive Date: 20120521
  Receipt Date: 20120507
  Transmission Date: 20120825
  Serious: No
  Sender: FDA-Public Use
  Company Number: US-JNJFOC-20120507941

PATIENT
  Sex: Female
  Weight: 36.29 kg

DRUGS (1)
  1. FENTANYL-100 [Suspect]
     Indication: BACK PAIN
     Route: 062
     Dates: start: 20120201

REACTIONS (1)
  - WRONG TECHNIQUE IN DRUG USAGE PROCESS [None]
